FAERS Safety Report 7225846-6 (Version None)
Quarter: 2011Q1

REPORT INFORMATION
  Report Type: 
  Country: None (occurrence: None)
  Receive Date: 20110107
  Receipt Date: 20110107
  Transmission Date: 20110831
  Serious: Yes (Life-Threatening, Hospitalization)
  Sender: FDA-Public Use
  Company Number: None

PATIENT
  Age: 53 Year
  Sex: Female
  Weight: 80 kg

DRUGS (2)
  1. BUPIVICAINE 0.5% HOSPIRA [Suspect]
     Indication: NERVE BLOCK
     Dosage: ONCE
  2. BUPIVICAINE 0.5% HOSPIRA [Suspect]
     Dosage: ONCE

REACTIONS (2)
  - CONVULSION [None]
  - CARDIAC ARREST [None]
